FAERS Safety Report 7228209-2 (Version None)
Quarter: 2011Q1

REPORT INFORMATION
  Report Type: 
  Country: None (occurrence: None)
  Receive Date: 20110114
  Receipt Date: 20110106
  Transmission Date: 20110831
  Serious: Yes (Other)
  Sender: FDA-Public Use
  Company Number: JP-NAPPMUNDI-GBR-2011-0007591

PATIENT
  Age: 18 Year
  Sex: Female

DRUGS (4)
  1. HALOPERIDOL [Suspect]
     Indication: ANALGESIC THERAPY
  2. MORPHINE SULFATE [Suspect]
     Indication: ANALGESIC THERAPY
  3. FENTANYL [Suspect]
     Indication: ANALGESIC THERAPY
  4. DROPERIDOL [Suspect]
     Indication: ANALGESIC THERAPY

REACTIONS (10)
  - DYSPNOEA [None]
  - MUTISM [None]
  - MUSCLE RIGIDITY [None]
  - TACHYCARDIA [None]
  - HYPERHIDROSIS [None]
  - AFFECT LABILITY [None]
  - WAXY FLEXIBILITY [None]
  - MYOCLONUS [None]
  - IMMOBILE [None]
  - PYREXIA [None]
